FAERS Safety Report 16958307 (Version 1)
Quarter: 2019Q4

REPORT INFORMATION
  Report Type: Report from Study
  Country: US (occurrence: US)
  Receive Date: 20191024
  Receipt Date: 20191024
  Transmission Date: 20200122
  Serious: Yes (Hospitalization)
  Sender: FDA-Public Use
  Company Number: US-GILEAD-2019-0433747

PATIENT
  Age: 55 Year
  Sex: Male

DRUGS (2)
  1. RANOLAZINE. [Suspect]
     Active Substance: RANOLAZINE
     Indication: ANGINA PECTORIS
     Dosage: 500 MG, BID
     Route: 048
     Dates: start: 20191009
  2. RANOLAZINE. [Suspect]
     Active Substance: RANOLAZINE
     Indication: ARTERIOSCLEROSIS CORONARY ARTERY
     Dosage: 500 MG, BID
     Route: 048
     Dates: start: 20190712, end: 20190720

REACTIONS (5)
  - Blood sodium decreased [Unknown]
  - Intentional product use issue [Recovered/Resolved]
  - Dyspnoea [Unknown]
  - Laboratory test abnormal [Unknown]
  - Dizziness [Unknown]

NARRATIVE: CASE EVENT DATE: 20190720
